FAERS Safety Report 14239896 (Version 1)
Quarter: 2017Q4

REPORT INFORMATION
  Report Type: Spontaneous
  Country: US (occurrence: US)
  Receive Date: 20171128
  Receipt Date: 20171128
  Transmission Date: 20180321
  Serious: No
  Sender: FDA-Public Use
  Company Number: None

PATIENT
  Age: 15 Year
  Sex: Female
  Weight: 55.8 kg

DRUGS (2)
  1. SYSTANE LUBRICANT DROPS [Concomitant]
  2. PAZEO [Suspect]
     Active Substance: OLOPATADINE HYDROCHLORIDE
     Indication: HEADACHE
     Dosage: ?          QUANTITY:1 DROP(S);?
     Route: 047
     Dates: start: 20171101, end: 20171128

REACTIONS (1)
  - Somnolence [None]

NARRATIVE: CASE EVENT DATE: 20171127
